FAERS Safety Report 25188379 (Version 1)
Quarter: 2025Q2

REPORT INFORMATION
  Report Type: Spontaneous
  Country: ES (occurrence: ES)
  Receive Date: 20250411
  Receipt Date: 20250411
  Transmission Date: 20250717
  Serious: Yes (Hospitalization, Other)
  Sender: FLORIDA PHARMACEUTICAL PRODUCTS
  Company Number: ES-FLORIDAPHARMA-ES-2025FPPLIT00002

PATIENT
  Age: 76 Year
  Sex: Male

DRUGS (3)
  1. ABIRATERONE ACETATE [Suspect]
     Active Substance: ABIRATERONE ACETATE
     Indication: Hormone-refractory prostate cancer
     Route: 065
  2. ROSUVASTATIN [Suspect]
     Active Substance: ROSUVASTATIN
     Indication: Hypercholesterolaemia
     Route: 065
     Dates: start: 2020
  3. PREDNISONE [Concomitant]
     Active Substance: PREDNISONE
     Indication: Hormone-refractory prostate cancer
     Route: 048

REACTIONS (2)
  - Rhabdomyolysis [Recovered/Resolved]
  - Drug interaction [Recovered/Resolved]
